FAERS Safety Report 4276850-1 (Version None)
Quarter: 2004Q1

REPORT INFORMATION
  Report Type: 
  Country: None (occurrence: None)
  Receive Date: 20040120
  Receipt Date: 20040106
  Transmission Date: 20041129
  Serious: Yes (Life-Threatening)
  Sender: FDA-Public Use
  Company Number: 03H-013-0244891-00

PATIENT
  Age: 55 Year
  Sex: Male

DRUGS (3)
  1. SEVOFLURANE [Suspect]
     Indication: ANAESTHESIA
     Dosage: 3%, MAC, INHALATION
     Route: 055
     Dates: start: 20031210, end: 20031210
  2. NIMBEX [Suspect]
     Indication: MUSCLE RELAXANT THERAPY
     Dates: start: 20031210, end: 20031210
  3. PROPOFOL [Suspect]
     Indication: ANAESTHESIA
     Dates: start: 20031210, end: 20031210

REACTIONS (8)
  - ANAESTHETIC COMPLICATION CARDIAC [None]
  - ANAESTHETIC COMPLICATION PULMONARY [None]
  - ARRHYTHMIA [None]
  - HYPERTENSION [None]
  - HYPERTHERMIA MALIGNANT [None]
  - HYPOXIA [None]
  - PCO2 INCREASED [None]
  - RESPIRATORY ACIDOSIS [None]
